FAERS Safety Report 12859456 (Version 1)
Quarter: 2016Q4

REPORT INFORMATION
  Report Type: Spontaneous
  Country: US (occurrence: US)
  Receive Date: 20161018
  Receipt Date: 20161018
  Transmission Date: 20170207
  Serious: No
  Sender: FDA-Public Use
  Company Number: US-TRIS PHARMA, INC.-1058493

PATIENT
  Sex: Female
  Weight: 12.05 kg

DRUGS (2)
  1. KARBINAL ER [Suspect]
     Active Substance: CARBINOXAMINE MALEATE
     Indication: RHINITIS ALLERGIC
     Route: 048
  2. KARBINAL ER [Suspect]
     Active Substance: CARBINOXAMINE MALEATE
     Indication: OTITIS MEDIA
     Route: 048

REACTIONS (5)
  - Psychomotor hyperactivity [None]
  - Off label use [None]
  - Insomnia [None]
  - Paradoxical drug reaction [None]
  - Agitation [None]

NARRATIVE: CASE EVENT DATE: 20160911
